FAERS Safety Report 6439956-4 (Version None)
Quarter: 2009Q4

REPORT INFORMATION
  Report Type: 
  Country: None (occurrence: None)
  Receive Date: 20091112
  Receipt Date: 20091112
  Transmission Date: 20100525
  Serious: Yes (Hospitalization)
  Sender: FDA-Public Use
  Company Number: None

PATIENT
  Sex: Female
  Weight: 90.7194 kg

DRUGS (1)
  1. ALLI [Suspect]
     Indication: OVERWEIGHT
     Dosage: 1 CAPSULE 3X W/MEALS DAILY PO
     Route: 048
     Dates: start: 20090101, end: 20090315

REACTIONS (5)
  - ARTHROSCOPIC SURGERY [None]
  - CHOLECYSTECTOMY [None]
  - CHOLELITHIASIS [None]
  - PANCREATITIS [None]
  - WEIGHT DECREASED [None]
